FAERS Safety Report 12731405 (Version 1)
Quarter: 2016Q3

REPORT INFORMATION
  Report Type: Spontaneous
  Country: US (occurrence: US)
  Receive Date: 20160908
  Receipt Date: 20160908
  Transmission Date: 20161109
  Serious: Yes (Other)
  Sender: FDA-Public Use
  Company Number: None

PATIENT
  Age: 63 Year
  Sex: Male

DRUGS (1)
  1. NOVOLIN 70/30 [Suspect]
     Active Substance: INSULIN HUMAN
     Indication: DIABETES MELLITUS
     Dosage: 60 UNITS 40 UNITS AM PM SQ SQ
     Route: 058
     Dates: start: 20160811, end: 20160829

REACTIONS (4)
  - Asthenia [None]
  - Muscle spasms [None]
  - Peripheral swelling [None]
  - Myalgia [None]
